FAERS Safety Report 4916591-8 (Version None)
Quarter: 2006Q1

REPORT INFORMATION
  Report Type: 
  Country: None (occurrence: None)
  Receive Date: 20060220
  Receipt Date: 20051209
  Transmission Date: 20060701
  Serious: Yes (Hospitalization, Disabling, Other)
  Sender: FDA-Public Use
  Company Number: GB-GLAXOSMITHKLINE-B0403295A

PATIENT
  Age: 41 Year
  Sex: Female
  Weight: 57.3 kg

DRUGS (5)
  1. ZYBAN [Suspect]
     Route: 048
     Dates: start: 20051205
  2. COPROXAMOL [Concomitant]
     Indication: PAIN
  3. SALBUTAMOL [Concomitant]
     Route: 055
  4. BECLOMETHASONE DIPROPIONATE [Concomitant]
     Route: 055
  5. COLOFAC [Concomitant]
     Indication: ABDOMINAL PAIN

REACTIONS (4)
  - ARTHRALGIA [None]
  - DYSPNOEA [None]
  - RASH [None]
  - RASH ERYTHEMATOUS [None]
